FAERS Safety Report 4979333-6 (Version None)
Quarter: 2006Q2

REPORT INFORMATION
  Report Type: 
  Country: None (occurrence: None)
  Receive Date: 20060421
  Receipt Date: 20060111
  Transmission Date: 20061013
  Serious: Yes (Hospitalization)
  Sender: FDA-Public Use
  Company Number: US-MERCK-0601USA01576

PATIENT
  Age: 67 Year
  Sex: Male
  Weight: 112 kg

DRUGS (9)
  1. VIOXX [Suspect]
     Indication: ARTHRITIS
     Route: 048
     Dates: start: 19990101, end: 20030520
  2. ALBUTEROL [Concomitant]
     Route: 065
  3. CLARITIN [Concomitant]
     Route: 065
  4. SYNTHROID [Concomitant]
     Route: 065
  5. SINGULAIR [Concomitant]
     Route: 065
  6. PRILOSEC [Concomitant]
     Route: 065
  7. ATENOLOL [Concomitant]
     Route: 065
  8. ASPIRIN [Concomitant]
     Route: 065
  9. SIMVASTATIN [Concomitant]
     Route: 065
     Dates: start: 19990101

REACTIONS (11)
  - ABDOMINAL PAIN [None]
  - BLOOD CHOLESTEROL INCREASED [None]
  - BLOOD TRIGLYCERIDES INCREASED [None]
  - CHEST DISCOMFORT [None]
  - DIABETES MELLITUS [None]
  - DYSPNOEA [None]
  - GASTRIC DISORDER [None]
  - HYPERHIDROSIS [None]
  - INJURY [None]
  - MYOCARDIAL INFARCTION [None]
  - PALLOR [None]
